FAERS Safety Report 24433014 (Version 3)
Quarter: 2024Q4

REPORT INFORMATION
  Report Type: Spontaneous
  Country: GB (occurrence: GB)
  Receive Date: 20241014
  Receipt Date: 20241223
  Transmission Date: 20250115
  Serious: Yes (Death, Other)
  Sender: MYLAN
  Company Number: GB-MYLANLABS-2024M1091933

PATIENT
  Age: 67 Year
  Sex: Female
  Weight: 82.6 kg

DRUGS (4)
  1. CLOZARIL [Suspect]
     Active Substance: CLOZAPINE
     Indication: Schizophrenia
     Dosage: 225 MILLIGRAM, PM (AT NIGHT)
     Route: 048
     Dates: start: 20020607
  2. EPILIM [Concomitant]
     Active Substance: VALPROATE SODIUM
     Indication: Mood swings
     Dosage: 300 MILLIGRAM, BID (TWICE A DAY)
     Route: 048
     Dates: start: 20020607
  3. LEVOTHYROXINE [Concomitant]
     Active Substance: LEVOTHYROXINE
     Indication: Hypothyroidism
     Dosage: 250 MICROGRAM, AM (MORNING)
     Route: 048
     Dates: start: 20020607
  4. CITALOPRAM [Concomitant]
     Active Substance: CITALOPRAM
     Indication: Depression
     Dosage: 20 MILLIGRAM, AM (MORNING)
     Route: 048
     Dates: start: 20020607

REACTIONS (4)
  - Death [Fatal]
  - Rectal cancer [Unknown]
  - Metastases to liver [Unknown]
  - Palliative care [Unknown]

NARRATIVE: CASE EVENT DATE: 20241006
